FAERS Safety Report 5049934-8 (Version None)
Quarter: 2006Q3

REPORT INFORMATION
  Report Type: 
  Country: None (occurrence: None)
  Receive Date: 20060707
  Receipt Date: 20060627
  Transmission Date: 20061208
  Serious: Yes (Other)
  Sender: FDA-Public Use
  Company Number: 200612725BCC

PATIENT
  Age: 71 Year
  Sex: Female
  Weight: 63.5036 kg

DRUGS (6)
  1. ASPIRIN [Suspect]
     Indication: ISCHAEMIC HEART DISEASE PROPHYLAXIS
     Dosage: 81 MG, QD, ORAL
     Route: 048
     Dates: start: 19950101, end: 20060606
  2. PLAVIX [Suspect]
     Dosage: ORAL
     Route: 048
     Dates: start: 19990101, end: 20060607
  3. NORVASC [Concomitant]
  4. ZETIA [Concomitant]
  5. ATENOLOL [Concomitant]
  6. LIPITOR [Concomitant]

REACTIONS (3)
  - CONTUSION [None]
  - LUNG NEOPLASM MALIGNANT [None]
  - MYOCARDIAL INFARCTION [None]
